FAERS Safety Report 5804034-1 (Version None)
Quarter: 2008Q3

REPORT INFORMATION
  Report Type: 
  Country: None (occurrence: None)
  Receive Date: 20080709
  Receipt Date: 20080704
  Transmission Date: 20090109
  Serious: Yes (Hospitalization)
  Sender: FDA-Public Use
  Company Number: FR-RANBAXY-2008RR-16228

PATIENT

DRUGS (2)
  1. METFORMINE RANBAXY 850MG COMPRIME PELLICULE [Suspect]
     Indication: HYPERGLYCAEMIA
     Dosage: 850 MG, BID
     Dates: start: 20040101
  2. FLUDARABINE PHOSPHATE [Concomitant]
     Dosage: UNK
     Dates: start: 20070101

REACTIONS (1)
  - AUTOIMMUNE NEUTROPENIA [None]
